FAERS Safety Report 6750268-1 (Version None)
Quarter: 2010Q2

REPORT INFORMATION
  Report Type: 
  Country: None (occurrence: None)
  Receive Date: 20100601
  Receipt Date: 20100526
  Transmission Date: 20101027
  Serious: Yes (Hospitalization, Other)
  Sender: FDA-Public Use
  Company Number: US-PFIZER INC-2010052777

PATIENT
  Sex: Male

DRUGS (4)
  1. VISTARIL [Suspect]
     Indication: PRURITUS
     Dosage: UNK
  2. GABAPENTIN [Suspect]
     Indication: PAIN IN EXTREMITY
     Dosage: 300 MG, 2X/DAY
     Route: 048
     Dates: end: 20100423
  3. OXYCODONE [Suspect]
     Indication: PAIN
     Dosage: UNK
  4. ACETAMINOPHEN AND HYDROCODONE BITARTRATE [Concomitant]
     Dosage: UNK

REACTIONS (5)
  - DRUG HYPERSENSITIVITY [None]
  - EXFOLIATIVE RASH [None]
  - HALLUCINATION [None]
  - KNEE ARTHROPLASTY [None]
  - PRURITUS [None]
